FAERS Safety Report 5452580-5 (Version None)
Quarter: 2007Q3

REPORT INFORMATION
  Report Type: 
  Country: None (occurrence: None)
  Receive Date: 20070914
  Receipt Date: 20070906
  Transmission Date: 20080115
  Serious: Yes (Hospitalization, Other)
  Sender: FDA-Public Use
  Company Number: FR-NOVOPROD-266358

PATIENT
  Age: 87 Year
  Sex: Female
  Weight: 70 kg

DRUGS (6)
  1. NOVONORM [Suspect]
     Indication: DRUG USE FOR UNKNOWN INDICATION
     Dosage: 1.5 MG, QD
     Route: 048
     Dates: start: 20070709, end: 20070806
  2. PREVISCAN                          /00261401/ [Concomitant]
     Indication: ARRHYTHMIA
     Dosage: .25 UNK, UNK
     Route: 048
  3. FLECAINIDE ACETATE [Concomitant]
     Indication: ARRHYTHMIA
     Dosage: 100 MG, QD
     Route: 048
  4. BISOPROLOL [Concomitant]
     Indication: HYPERTENSION
     Dosage: 5 MG, QD
     Route: 048
  5. IRBESARTAN [Concomitant]
     Indication: HYPERTENSION
  6. ALLOPURINOL [Concomitant]
     Indication: GOUT
     Dosage: 200 MG, QD
     Route: 048

REACTIONS (2)
  - MICROANGIOPATHIC HAEMOLYTIC ANAEMIA [None]
  - VASCULITIS [None]
